FAERS Safety Report 8870516 (Version 1)
Quarter: 2012Q4

REPORT INFORMATION
  Report Type: Spontaneous
  Country: US (occurrence: None)
  Receive Date: 20121026
  Receipt Date: 20121026
  Transmission Date: 20130627
  Serious: Yes (Hospitalization)
  Sender: FDA-Public Use
  Company Number: None

PATIENT
  Age: 60 Year
  Sex: Male
  Weight: 105.2 kg

DRUGS (6)
  1. GEMCITABINE [Suspect]
     Indication: METASTASES TO PERITONEUM
     Dosage: weekly x2 doses
     Route: 042
     Dates: start: 20120808, end: 20120815
  2. GEMCITABINE [Suspect]
     Indication: MALIGNANT OMENTUM NEOPLASM
     Dosage: weekly x2 doses
     Route: 042
     Dates: start: 20120808, end: 20120815
  3. GEMCITABINE [Suspect]
     Indication: METASTASES TO LIVER
     Dosage: weekly x2 doses
     Route: 042
     Dates: start: 20120808, end: 20120815
  4. TL-32711 [Suspect]
     Indication: METASTASES TO PERITONEUM
     Dosage: weekly x2 doses
     Route: 042
     Dates: start: 20120808, end: 20120815
  5. TL-32711 [Suspect]
     Indication: MALIGNANT OMENTUM NEOPLASM
     Dosage: weekly x2 doses
     Route: 042
     Dates: start: 20120808, end: 20120815
  6. TL-32711 [Suspect]
     Indication: METASTASES TO LIVER
     Dosage: weekly x2 doses
     Route: 042
     Dates: start: 20120808, end: 20120815

REACTIONS (3)
  - Tumour invasion [None]
  - Malignant neoplasm progression [None]
  - Small intestinal obstruction [None]
